FAERS Safety Report 25468304 (Version 1)
Quarter: 2025Q2

REPORT INFORMATION
  Report Type: Spontaneous
  Country: US (occurrence: US)
  Receive Date: 20250623
  Receipt Date: 20250623
  Transmission Date: 20250717
  Serious: No
  Sender: INSUD PHARMA
  Company Number: US-INSUD PHARMA-2506US04475

PATIENT

DRUGS (1)
  1. OMEPRAZOLE [Suspect]
     Active Substance: OMEPRAZOLE
     Indication: Dyspepsia
     Dosage: ONE 20 MG CAPSULE A DAY
     Route: 048
     Dates: start: 20250524

REACTIONS (3)
  - Drug effect less than expected [Not Recovered/Not Resolved]
  - Intentional product use issue [Unknown]
  - Product substitution issue [Unknown]

NARRATIVE: CASE EVENT DATE: 20250524
